FAERS Safety Report 9167001 (Version 1)
Quarter: 2013Q1

REPORT INFORMATION
  Report Type: Spontaneous
  Country: GB (occurrence: GB)
  Receive Date: 20130317
  Receipt Date: 20130317
  Transmission Date: 20140127
  Serious: Yes (Other)
  Sender: FDA-Public Use
  Company Number: GB-TEVA-390962ISR

PATIENT
  Sex: Female

DRUGS (2)
  1. TRAMADOL [Suspect]
     Indication: NEURALGIA
  2. CITALOPRAM [Concomitant]
     Indication: DEPRESSION
     Dosage: SINCE 8 YEARS

REACTIONS (6)
  - Withdrawal syndrome [Unknown]
  - Hallucination [Unknown]
  - Agitation [Unknown]
  - Injury [Unknown]
  - Chest discomfort [Unknown]
  - Drug dependence [Unknown]
